FAERS Safety Report 6033115-5 (Version None)
Quarter: 2009Q1

REPORT INFORMATION
  Report Type: 
  Country: None (occurrence: None)
  Receive Date: 20090109
  Receipt Date: 20080910
  Transmission Date: 20090719
  Serious: Yes (Other)
  Sender: FDA-Public Use
  Company Number: PHHY2008BR20917

PATIENT
  Age: 83 Year
  Sex: Female
  Weight: 70 kg

DRUGS (4)
  1. EXELON [Suspect]
     Indication: DEMENTIA ALZHEIMER'S TYPE
     Dosage: 1.5 MG, QD
  2. CILOSTAZOL [Concomitant]
     Indication: CEREBROVASCULAR ACCIDENT
     Dosage: 2 TABLETS DAILY
     Route: 048
  3. SEROQUEL [Concomitant]
     Indication: DEMENTIA ALZHEIMER'S TYPE
     Dosage: 2 TABLETS DAILY
     Route: 048
  4. MEMANTINE HCL [Concomitant]
     Indication: DEMENTIA ALZHEIMER'S TYPE
     Dosage: 2 TABLETS DAILY
     Route: 048

REACTIONS (2)
  - CEREBROVASCULAR ACCIDENT [None]
  - DIARRHOEA [None]
